FAERS Safety Report 5105136-8 (Version None)
Quarter: 2006Q3

REPORT INFORMATION
  Report Type: 
  Country: None (occurrence: None)
  Receive Date: 20060914
  Receipt Date: 20060912
  Transmission Date: 20061208
  Serious: Yes (Hospitalization)
  Sender: FDA-Public Use
  Company Number: AU-MERCK-0609AUS00081

PATIENT
  Age: 55 Year
  Sex: Male

DRUGS (8)
  1. ZOCOR [Suspect]
     Indication: METABOLIC DISORDER
     Route: 048
     Dates: end: 20060404
  2. PERINDOPRIL ERBUMINE [Concomitant]
     Indication: ESSENTIAL HYPERTENSION
     Route: 065
  3. CALCIUM CARBONATE [Concomitant]
     Route: 065
  4. ALUMINUM HYDROXIDE [Concomitant]
     Route: 065
  5. EPOETIN ALFA [Concomitant]
     Route: 065
  6. ERGOCALCIFEROL [Concomitant]
     Route: 065
  7. GEMFIBROZIL [Suspect]
     Indication: XANTHOMATOSIS
     Route: 048
     Dates: end: 20060404
  8. ALLOPURINOL [Suspect]
     Indication: GOUT
     Route: 048
     Dates: end: 20060404

REACTIONS (4)
  - HAEMATURIA [None]
  - MUSCULAR WEAKNESS [None]
  - MYOSITIS [None]
  - RHABDOMYOLYSIS [None]
